FAERS Safety Report 9591949 (Version 2)
Quarter: 2013Q4

REPORT INFORMATION
  Report Type: Spontaneous
  Country: US (occurrence: US)
  Receive Date: 20131004
  Receipt Date: 20131004
  Transmission Date: 20140711
  Serious: No
  Sender: FDA-Public Use
  Company Number: US-AMGEN-USASP2012081795

PATIENT
  Age: 60 Year
  Sex: Female
  Weight: 92.97 kg

DRUGS (11)
  1. ENBREL [Suspect]
     Indication: PSORIASIS
     Dosage: 50 MG, BIWEEKLY
     Route: 058
     Dates: start: 200503, end: 201211
  2. ENBREL [Suspect]
     Indication: PSORIATIC ARTHROPATHY
  3. SIMPONI [Concomitant]
     Dosage: 50 MG, UNK
     Route: 058
     Dates: start: 20121109
  4. MOTRIN [Concomitant]
     Dosage: 600 MG, UNK
     Route: 048
  5. SYNTHROID [Concomitant]
     Indication: THYROID DISORDER
     Dosage: 200 MCG, UNK
     Route: 048
     Dates: start: 1979
  6. CLOBEXPRO [Concomitant]
     Indication: PSORIASIS
     Dosage: 0.05 % EX, PRN, UNK
     Route: 061
     Dates: start: 20090618
  7. VITAMINE E [Concomitant]
     Dosage: UNK
  8. VITAMIN B12                        /00056201/ [Concomitant]
     Dosage: 200 MCG, UNK
     Route: 048
  9. FISH OIL [Concomitant]
     Dosage: UNK
     Route: 048
  10. MULTIVITAMIN                       /00097801/ [Concomitant]
     Dosage: UNK
     Route: 048
  11. DOVONEX [Concomitant]
     Indication: PSORIASIS
     Dosage: UNK UNK, PRN
     Route: 061
     Dates: start: 1979

REACTIONS (3)
  - Therapeutic response decreased [Unknown]
  - Injection site pain [Recovered/Resolved]
  - Injection site erythema [Recovered/Resolved]
